FAERS Safety Report 8132631-X (Version None)
Quarter: 2012Q1

REPORT INFORMATION
  Report Type: 
  Country: None (occurrence: None)
  Receive Date: 20120213
  Receipt Date: 20120206
  Transmission Date: 20120608
  Serious: Yes (Other)
  Sender: FDA-Public Use
  Company Number: BR-GLAXOSMITHKLINE-A0965387A

PATIENT
  Age: 15 Month
  Sex: Female

DRUGS (1)
  1. ALBUTEROL [Suspect]
     Indication: ASTHMA
     Route: 055
     Dates: start: 20111201

REACTIONS (2)
  - ASTHMATIC CRISIS [None]
  - NASOPHARYNGITIS [None]
